FAERS Safety Report 17870236 (Version 2)
Quarter: 2020Q3

REPORT INFORMATION
  Report Type: Report from Study
  Country: None (occurrence: US)
  Receive Date: 20200608
  Receipt Date: 20200728
  Transmission Date: 20201103
  Serious: Yes (Hospitalization)
  Sender: FDA-Public Use
  Company Number: US-ABBVIE-20P-163-3434225-00

PATIENT
  Age: 70 Year
  Sex: Male

DRUGS (2)
  1. IMBRUVICA [Suspect]
     Active Substance: IBRUTINIB
     Route: 048
     Dates: start: 20200522
  2. IMBRUVICA [Suspect]
     Active Substance: IBRUTINIB
     Indication: NON-HODGKIN^S LYMPHOMA
     Route: 048
     Dates: start: 20200527

REACTIONS (7)
  - Red blood cell count increased [Unknown]
  - Platelet count decreased [Unknown]
  - Gait disturbance [Unknown]
  - Haemoglobin abnormal [Unknown]
  - Pneumonia [Unknown]
  - Muscular weakness [Unknown]
  - Feeling cold [Unknown]

NARRATIVE: CASE EVENT DATE: 2020
